FAERS Safety Report 5496861-8 (Version None)
Quarter: 2007Q4

REPORT INFORMATION
  Report Type: 
  Country: None (occurrence: None)
  Receive Date: 20071025
  Receipt Date: 20070828
  Transmission Date: 20080405
  Serious: No
  Sender: FDA-Public Use
  Company Number: A0677014A

PATIENT
  Age: 75 Year
  Sex: Female

DRUGS (13)
  1. ADVAIR DISKUS 100/50 [Suspect]
     Indication: ASTHMA
     Dosage: 1PUFF TWICE PER DAY
     Route: 055
     Dates: start: 20031001
  2. ASTELIN [Concomitant]
  3. ALBUTEROL [Concomitant]
  4. DYAZIDE [Concomitant]
  5. GLUCOTROL [Concomitant]
  6. MICRO-K [Concomitant]
  7. PROTONIX [Concomitant]
  8. AMITRIPTYLINE HCL [Concomitant]
  9. LEVAQUIN [Concomitant]
  10. SINGULAIR [Concomitant]
  11. CELEBREX [Concomitant]
  12. PREDNISONE [Concomitant]
  13. BENTYL [Concomitant]

REACTIONS (2)
  - DYSPHONIA [None]
  - DYSPNOEA [None]
